FAERS Safety Report 10032548 (Version 1)
Quarter: 2014Q1

REPORT INFORMATION
  Report Type: Spontaneous
  Country: DK (occurrence: DK)
  Receive Date: 20140324
  Receipt Date: 20140324
  Transmission Date: 20141002
  Serious: Yes (Other)
  Sender: FDA-Public Use
  Company Number: DK-TEVA-470643ISR

PATIENT
  Age: 81 Year
  Sex: Male

DRUGS (2)
  1. METHOTREXATE [Suspect]
     Indication: ARTHRITIS
     Route: 065
     Dates: start: 201204
  2. ROACTEMRA [Suspect]
     Indication: ARTHRITIS
     Route: 065
     Dates: start: 201204

REACTIONS (1)
  - Prostate cancer [Unknown]
